FAERS Safety Report 10245002 (Version 1)
Quarter: 2014Q2

REPORT INFORMATION
  Report Type: Spontaneous
  Country: US (occurrence: US)
  Receive Date: 20140618
  Receipt Date: 20140618
  Transmission Date: 20141212
  Serious: No
  Sender: FDA-Public Use
  Company Number: US-GALDERMA-US14001018

PATIENT
  Age: 55 Year
  Sex: Male

DRUGS (3)
  1. MIRVASO (BRIMONIDINE) TOPICAL GEL, 0.33% [Suspect]
     Indication: ERYTHEMA
     Dosage: 0.33%
     Route: 061
     Dates: start: 201403
  2. NEXIUM [Concomitant]
     Dosage: 40 MG
     Route: 048
  3. MULTIVITAMINS [Concomitant]
     Route: 048

REACTIONS (4)
  - Condition aggravated [Recovered/Resolved]
  - Emotional distress [Recovered/Resolved]
  - Off label use [Recovered/Resolved]
  - Drug ineffective for unapproved indication [Recovered/Resolved]
